FAERS Safety Report 20143322 (Version 1)
Quarter: 2021Q4

REPORT INFORMATION
  Report Type: Spontaneous
  Country: US (occurrence: US)
  Receive Date: 20211203
  Receipt Date: 20211203
  Transmission Date: 20220304
  Serious: Yes (Other)
  Sender: FDA-Public Use
  Company Number: US-CIPLA LTD.-2021US07776

PATIENT

DRUGS (4)
  1. OLANZAPINE [Suspect]
     Active Substance: OLANZAPINE
     Indication: Catatonia
     Dosage: 2.5 MILLIGRAM, QHS (EVERY NIGHT AT BEDTIME)
     Route: 048
  2. LURASIDONE [Suspect]
     Active Substance: LURASIDONE
     Indication: Catatonia
     Dosage: 20 MG, DAILY
     Route: 048
  3. RISPERIDONE [Suspect]
     Active Substance: RISPERIDONE
     Indication: Catatonia
     Dosage: UNK, 3 TRIALS
     Route: 065
  4. ARIPIPRAZOLE [Suspect]
     Active Substance: ARIPIPRAZOLE
     Indication: Catatonia
     Dosage: 5 MG, DAILY
     Route: 048

REACTIONS (2)
  - Condition aggravated [Unknown]
  - Catatonia [Unknown]
